FAERS Safety Report 4678958-5 (Version None)
Quarter: 2005Q2

REPORT INFORMATION
  Report Type: 
  Country: None (occurrence: None)
  Receive Date: 20050531
  Receipt Date: 20050217
  Transmission Date: 20051028
  Serious: Yes (Hospitalization, Other)
  Sender: FDA-Public Use
  Company Number: 2005035289

PATIENT
  Age: 75 Year
  Sex: Male

DRUGS (4)
  1. LIPITOR [Suspect]
     Indication: BLOOD CHOLESTEROL
     Dosage: (20 MG)
     Dates: end: 20040101
  2. ALTACE [Suspect]
     Indication: ILL-DEFINED DISORDER
     Dosage: (5 MG)
  3. METOPROLOL TARTRATE [Suspect]
     Indication: ILL-DEFINED DISORDER
     Dosage: (50 MG)
  4. ASPIRIN [Suspect]
     Indication: ILL-DEFINED DISORDER

REACTIONS (4)
  - CORONARY ARTERY SURGERY [None]
  - ERECTILE DYSFUNCTION [None]
  - LIBIDO DISORDER [None]
  - POST PROCEDURAL COMPLICATION [None]
